FAERS Safety Report 17761144 (Version 1)
Quarter: 2020Q2

REPORT INFORMATION
  Report Type: Report from Study
  Country: IT (occurrence: IT)
  Receive Date: 20200508
  Receipt Date: 20200508
  Transmission Date: 20200714
  Serious: Yes (Other)
  Sender: FDA-Public Use
  Company Number: IT-PFIZER INC-2020183957

PATIENT
  Age: 45 Year
  Sex: Male

DRUGS (2)
  1. GABAPENTIN. [Suspect]
     Active Substance: GABAPENTIN
     Dosage: UNK
     Route: 065
  2. CANNABIS SATIVA [Interacting]
     Active Substance: CANNABIS SATIVA FLOWERING TOP
     Indication: NEURALGIA
     Dosage: UNK

REACTIONS (7)
  - Urinary retention [Recovering/Resolving]
  - Memory impairment [Recovering/Resolving]
  - Confusional state [Recovering/Resolving]
  - Tachycardia [Recovering/Resolving]
  - Tremor [Recovering/Resolving]
  - Presyncope [Recovering/Resolving]
  - Drug interaction [Unknown]
